FAERS Safety Report 8322612-5 (Version None)
Quarter: 2012Q2

REPORT INFORMATION
  Report Type: 
  Country: None (occurrence: None)
  Receive Date: 20120426
  Receipt Date: 20120418
  Transmission Date: 20120825
  Serious: Yes (Hospitalization)
  Sender: FDA-Public Use
  Company Number: 2012SP021232

PATIENT
  Age: 43 Year
  Sex: Male

DRUGS (1)
  1. SAPHRIS [Suspect]
     Dosage: ;SL
     Route: 060

REACTIONS (1)
  - DRUG HYPERSENSITIVITY [None]
